FAERS Safety Report 9371999 (Version 1)
Quarter: 2013Q2

REPORT INFORMATION
  Report Type: Spontaneous
  Country: US (occurrence: US)
  Receive Date: 20130627
  Receipt Date: 20130627
  Transmission Date: 20140414
  Serious: No
  Sender: FDA-Public Use
  Company Number: US-PFIZER INC-2013190743

PATIENT
  Age: 42 Year
  Sex: Female
  Weight: 76.19 kg

DRUGS (8)
  1. LYRICA [Suspect]
     Indication: FIBROMYALGIA
     Dosage: 150 MG, 3X/DAY
     Route: 048
     Dates: end: 20130624
  2. MELOXICAM [Concomitant]
     Dosage: UNK
  3. MOTRIN [Concomitant]
     Dosage: UNK
  4. CELEXA [Concomitant]
     Dosage: UNK
  5. WELLBUTRIN [Concomitant]
     Dosage: UNK
  6. VALIUM [Concomitant]
     Dosage: UNK
  7. SEROQUEL [Concomitant]
     Dosage: UNK
  8. THORAZINE [Concomitant]
     Dosage: UNK

REACTIONS (3)
  - Product quality issue [Unknown]
  - Capsule physical issue [Unknown]
  - Feeling abnormal [Unknown]
